FAERS Safety Report 20113040 (Version 1)
Quarter: 2021Q4

REPORT INFORMATION
  Report Type: Spontaneous
  Country: FR (occurrence: FR)
  Receive Date: 20211125
  Receipt Date: 20211125
  Transmission Date: 20220303
  Serious: Yes (Hospitalization, Disabling, Congenital Anomaly, Other)
  Sender: FDA-Public Use
  Company Number: FR-ABBVIE-21K-056-4172125-00

PATIENT
  Sex: Male
  Weight: 3.89 kg

DRUGS (1)
  1. VALPROATE SODIUM [Suspect]
     Active Substance: VALPROATE SODIUM
     Indication: Maternal exposure timing unspecified
     Route: 064

REACTIONS (33)
  - Epilepsy [Unknown]
  - Dysmorphism [Unknown]
  - Cryptorchism [Unknown]
  - Scoliosis [Unknown]
  - Psychomotor skills impaired [Unknown]
  - Macrocephaly [Unknown]
  - Autism spectrum disorder [Unknown]
  - Febrile convulsion [Unknown]
  - Anger [Unknown]
  - Anxiety [Unknown]
  - Encopresis [Unknown]
  - Body height above normal [Unknown]
  - Dyspepsia [Unknown]
  - Asthenia [Unknown]
  - Tonsillitis [Unknown]
  - Ear infection [Unknown]
  - Speech disorder [Unknown]
  - Language disorder [Unknown]
  - Learning disorder [Unknown]
  - Cardiac murmur [Unknown]
  - Growth retardation [Unknown]
  - Motor developmental delay [Unknown]
  - Visual impairment [Unknown]
  - Apraxia [Unknown]
  - Balance disorder [Unknown]
  - Developmental coordination disorder [Unknown]
  - Bradykinesia [Unknown]
  - Autism spectrum disorder [Unknown]
  - Social problem [Unknown]
  - Educational problem [Unknown]
  - Premature baby [Unknown]
  - Autism spectrum disorder [Unknown]
  - Foetal exposure during pregnancy [Unknown]

NARRATIVE: CASE EVENT DATE: 19910401
